FAERS Safety Report 5211387-4 (Version None)
Quarter: 2006Q4

REPORT INFORMATION
  Report Type: 
  Country: None (occurrence: None)
  Receive Date: 20061130
  Receipt Date: 20060810
  Transmission Date: 20070319
  Serious: Yes (Disabling)
  Sender: FDA-Public Use
  Company Number: WAES 0608USA03888

PATIENT
  Age: 74 Year
  Sex: Female
  Weight: 56.6996 kg

DRUGS (11)
  1. FOSAMAX [Suspect]
     Indication: OSTEOPOROSIS
     Dosage: 70 MG/WKY/PO
     Route: 048
     Dates: start: 20021001, end: 20050601
  2. DYAZIDE [Concomitant]
  3. FLONASE [Concomitant]
  4. IMURAN [Concomitant]
  5. MOTRIN [Concomitant]
  6. CALCIUM (UNSPECIFIED) [Concomitant]
  7. ESTROGENS (UNSPECIFIED) [Concomitant]
  8. FOLIC ACID [Concomitant]
  9. METHOTREXATE [Concomitant]
  10. POTASSIUM CHLORIDE [Concomitant]
  11. PREDNISONE [Concomitant]

REACTIONS (1)
  - OSTEONECROSIS [None]
